FAERS Safety Report 17763761 (Version 1)
Quarter: 2020Q2

REPORT INFORMATION
  Report Type: Spontaneous
  Country: FR (occurrence: FR)
  Receive Date: 20200510
  Receipt Date: 20200510
  Transmission Date: 20200714
  Serious: Yes (Hospitalization)
  Sender: FDA-Public Use
  Company Number: FR-CADILA HEALTHCARE LIMITED-FR-ZYDUS-026458

PATIENT

DRUGS (3)
  1. TRAMADOL. [Suspect]
     Active Substance: TRAMADOL
     Indication: TOOTHACHE
     Dosage: 200 MILLIGRAM,1-0-1 + IF NEEDED,(INTERVAL :1 DAYS)
     Route: 048
     Dates: start: 20180501, end: 20180531
  2. ABILIFY [Suspect]
     Active Substance: ARIPIPRAZOLE
     Indication: BIPOLAR DISORDER
     Dosage: 15 MILLIGRAM,(INTERVAL :1 DAYS)
     Route: 005
     Dates: start: 2017
  3. DEPAMIDE [Suspect]
     Active Substance: VALPROMIDE
     Indication: BIPOLAR DISORDER
     Dosage: 1500 MILLIGRAM,2-0-3,(INTERVAL :1 DAYS)
     Route: 048
     Dates: start: 2013

REACTIONS (3)
  - Decreased appetite [Recovered/Resolved]
  - Compulsive shopping [Recovered/Resolved]
  - Affective disorder [Recovered/Resolved]

NARRATIVE: CASE EVENT DATE: 20180501
